FAERS Safety Report 5620677-2 (Version None)
Quarter: 2008Q1

REPORT INFORMATION
  Report Type: 
  Country: None (occurrence: None)
  Receive Date: 20080208
  Receipt Date: 20080131
  Transmission Date: 20080703
  Serious: Yes (Other)
  Sender: FDA-Public Use
  Company Number: GB-ABBOTT-07P-167-0356670-00

PATIENT
  Sex: Female
  Weight: 95 kg

DRUGS (3)
  1. REDUCTIL 10MG [Suspect]
     Indication: OBESITY
     Route: 048
     Dates: start: 20061208, end: 20070112
  2. SERETIDE [Concomitant]
     Indication: ASTHMA
     Route: 055
     Dates: start: 20040211
  3. ENOXAPARIN SODIUM [Concomitant]
     Indication: FACTOR V DEFICIENCY
     Dates: start: 20071024

REACTIONS (2)
  - FACTOR V DEFICIENCY [None]
  - GESTATIONAL DIABETES [None]
